FAERS Safety Report 8802032 (Version 2)
Quarter: 2012Q4

REPORT INFORMATION
  Report Type: 
  Country: US (occurrence: US)
  Receive Date: 20120921
  Receipt Date: 20121016
  Transmission Date: 20130627
  Serious: Yes (Hospitalization)
  Sender: FDA-Public Use
  Company Number: US-CELGENEUS-163-21880-12092026

PATIENT
  Age: 53 Year
  Sex: Male

DRUGS (3)
  1. REVLIMID [Suspect]
     Indication: MULTIPLE MYELOMA
     Dosage: 25 Milligram
     Route: 048
     Dates: start: 201207, end: 2012
  2. REVLIMID [Suspect]
     Dosage: 25 Milligram
     Route: 048
     Dates: start: 201209
  3. VELCADE [Concomitant]
     Indication: MULTIPLE MYELOMA
     Route: 058

REACTIONS (2)
  - Lower limb fracture [Not Recovered/Not Resolved]
  - Plasma cell myeloma [Not Recovered/Not Resolved]
